FAERS Safety Report 6371610-X (Version None)
Quarter: 2009Q3

REPORT INFORMATION
  Report Type: 
  Country: None (occurrence: None)
  Receive Date: 20090923
  Receipt Date: 20081016
  Transmission Date: 20100115
  Serious: Yes (Hospitalization, Other)
  Sender: FDA-Public Use
  Company Number: US-ASTRAZENECA-2008UW08931

PATIENT
  Age: 52 Year
  Sex: Female
  Weight: 90.3 kg

DRUGS (3)
  1. SEROQUEL [Suspect]
     Indication: NO ADVERSE EVENT
     Dosage: 100 MG - 200 MG
     Route: 048
     Dates: start: 20020201
  2. SEROQUEL [Suspect]
     Indication: DEPRESSION
     Dosage: 100 MG - 200 MG
     Route: 048
     Dates: start: 20020201
  3. ZYPREXA [Concomitant]
     Dates: start: 20020101

REACTIONS (5)
  - BLOOD CHOLESTEROL INCREASED [None]
  - GLYCOSURIA [None]
  - SUICIDAL IDEATION [None]
  - TARDIVE DYSKINESIA [None]
  - WEIGHT INCREASED [None]
